FAERS Safety Report 12803829 (Version 1)
Quarter: 2016Q4

REPORT INFORMATION
  Report Type: Spontaneous
  Country: US (occurrence: US)
  Receive Date: 20161003
  Receipt Date: 20161003
  Transmission Date: 20170207
  Serious: Yes (Other)
  Sender: FDA-Public Use
  Company Number: US-009507513-1609USA014043

PATIENT
  Age: 66 Year
  Sex: Female

DRUGS (4)
  1. CREON [Concomitant]
     Active Substance: PANCRELIPASE AMYLASE\PANCRELIPASE LIPASE\PANCRELIPASE PROTEASE
  2. PROVENTIL [Concomitant]
     Active Substance: ALBUTEROL
  3. BENADRYL [Concomitant]
     Active Substance: DIPHENHYDRAMINE HYDROCHLORIDE
  4. KEYTRUDA [Suspect]
     Active Substance: PEMBROLIZUMAB
     Indication: GALLBLADDER CANCER METASTATIC
     Dosage: UNK
     Dates: start: 20160615, end: 20160928

REACTIONS (2)
  - Malignant neoplasm progression [Not Recovered/Not Resolved]
  - Product use issue [Unknown]

NARRATIVE: CASE EVENT DATE: 20160615
